FAERS Safety Report 7367270-1 (Version None)
Quarter: 2011Q1

REPORT INFORMATION
  Report Type: 
  Country: None (occurrence: None)
  Receive Date: 20110311
  Receipt Date: 20110201
  Transmission Date: 20110831
  Serious: Yes (Hospitalization, Other)
  Sender: FDA-Public Use
  Company Number: 201110018

PATIENT
  Sex: Female

DRUGS (2)
  1. LIORESAL [Suspect]
     Indication: MUSCLE SPASTICITY
     Dosage: 100 MCG, DAILY, INTRATHECAL
     Route: 037
  2. ORAL BACLOFEN [Concomitant]

REACTIONS (6)
  - DEVICE RELATED INFECTION [None]
  - MUSCLE TIGHTNESS [None]
  - POOR QUALITY SLEEP [None]
  - PURULENT DISCHARGE [None]
  - BACTERIAL INFECTION [None]
  - MUSCLE SPASMS [None]
